FAERS Safety Report 25063094 (Version 1)
Quarter: 2025Q1

REPORT INFORMATION
  Report Type: Spontaneous
  Country: US (occurrence: None)
  Receive Date: 20250310
  Receipt Date: 20250310
  Transmission Date: 20250408
  Serious: No
  Sender: FDA-CTU
  Company Number: None

PATIENT

DRUGS (4)
  1. SILDENAFIL [Suspect]
     Active Substance: SILDENAFIL
  2. OHTUVAYRE [Suspect]
     Active Substance: ENSIFENTRINE
  3. DUPIXENT [Suspect]
     Active Substance: DUPILUMAB
  4. PREDNISONE [Suspect]
     Active Substance: PREDNISONE

REACTIONS (1)
  - Pneumonia [None]
